FAERS Safety Report 5673045-1 (Version None)
Quarter: 2008Q1

REPORT INFORMATION
  Report Type: 
  Country: None (occurrence: None)
  Receive Date: 20080319
  Receipt Date: 20080108
  Transmission Date: 20080703
  Serious: No
  Sender: FDA-Public Use
  Company Number: US-ASTRAZENECA-2008UW00633

PATIENT

DRUGS (2)
  1. SYMBICORT [Suspect]
     Dosage: 2 INHALATIONS (80/4.5 UG) BID
     Route: 055
  2. SYMBICORT [Suspect]
     Dosage: 1 INHALATION (80/4.5 UG) BID
     Route: 055

REACTIONS (2)
  - FUNGAL INFECTION [None]
  - PHARYNGOLARYNGEAL PAIN [None]
